FAERS Safety Report 4279954-2 (Version None)
Quarter: 2004Q1

REPORT INFORMATION
  Report Type: 
  Country: None (occurrence: None)
  Receive Date: 20040127
  Receipt Date: 20040127
  Transmission Date: 20041129
  Serious: Yes (Other)
  Sender: FDA-Public Use
  Company Number: None

PATIENT
  Sex: Male

DRUGS (1)
  1. ACETAMINOPHEN [Suspect]
     Indication: PAIN
     Dosage: 2 TABLET 3 TIMES ORAL
     Route: 048

REACTIONS (1)
  - MEDICATION ERROR [None]
